FAERS Safety Report 10190109 (Version 2)
Quarter: 2014Q2

REPORT INFORMATION
  Report Type: Spontaneous
  Country: US (occurrence: US)
  Receive Date: 20140522
  Receipt Date: 20140522
  Transmission Date: 20141212
  Serious: No
  Sender: FDA-Public Use
  Company Number: US-ASTRAZENECA-2013SE80689

PATIENT
  Age: 51 Year
  Sex: Male
  Weight: 79.4 kg

DRUGS (4)
  1. PULMICORT FLEXHALER [Suspect]
     Indication: ASTHMA
     Route: 055
  2. SINGULAIR [Concomitant]
     Indication: HYPERSENSITIVITY
     Dosage: UNKNOWN DAILY
     Route: 048
  3. SINGULAIR [Concomitant]
     Indication: ASTHMA
     Dosage: UNKNOWN DAILY
     Route: 048
  4. ALBUTEROL [Concomitant]
     Indication: INHALATION THERAPY
     Dosage: UNKNOWN PRN
     Route: 055

REACTIONS (3)
  - Dyspnoea [Not Recovered/Not Resolved]
  - Cough [Not Recovered/Not Resolved]
  - Insomnia [Not Recovered/Not Resolved]
